FAERS Safety Report 5099071-1 (Version None)
Quarter: 2006Q3

REPORT INFORMATION
  Report Type: 
  Country: None (occurrence: None)
  Receive Date: 20060907
  Receipt Date: 20060821
  Transmission Date: 20061208
  Serious: Yes (Hospitalization)
  Sender: FDA-Public Use
  Company Number: JP-MERCK-0608USA05464

PATIENT
  Age: 58 Year
  Sex: Female

DRUGS (8)
  1. SINGULAIR [Suspect]
     Indication: ASTHMA
     Route: 048
     Dates: start: 20060804, end: 20060804
  2. CLARITHROMYCIN [Concomitant]
     Route: 048
     Dates: start: 20060804, end: 20060804
  3. PREDONINE [Concomitant]
     Route: 048
     Dates: start: 20020601
  4. OMEPRAZOLE [Concomitant]
     Route: 048
  5. ALFAROL [Concomitant]
     Route: 048
  6. BONALON [Concomitant]
     Route: 048
  7. BASEN [Concomitant]
     Route: 048
     Dates: start: 20050607
  8. FLUTIDE [Concomitant]
     Route: 055

REACTIONS (1)
  - ALLERGIC GRANULOMATOUS ANGIITIS [None]
